FAERS Safety Report 7149520-X (Version None)
Quarter: 2010Q4

REPORT INFORMATION
  Report Type: 
  Country: None (occurrence: None)
  Receive Date: 20101209
  Receipt Date: 20101130
  Transmission Date: 20110411
  Serious: Yes (Other)
  Sender: FDA-Public Use
  Company Number: US-WATSON-2010-15598

PATIENT
  Age: 55 Year
  Sex: Female

DRUGS (2)
  1. LORAZEPAM [Suspect]
     Indication: PRODUCT USED FOR UNKNOWN INDICATION
     Dosage: 1 TAB Q 6 HOURS PRN
     Route: 048
     Dates: start: 20101125
  2. LORAZEPAM [Suspect]
     Dosage: 1 TAB Q 6 HOURS PRN
     Route: 048
     Dates: start: 20090101, end: 20101125

REACTIONS (6)
  - INSOMNIA [None]
  - MALAISE [None]
  - NAUSEA [None]
  - NIGHTMARE [None]
  - PAIN [None]
  - SUICIDAL IDEATION [None]
